FAERS Safety Report 17799919 (Version 1)
Quarter: 2020Q2

REPORT INFORMATION
  Report Type: Spontaneous
  Country: CN (occurrence: CN)
  Receive Date: 20200518
  Receipt Date: 20200518
  Transmission Date: 20200714
  Serious: Yes (Other)
  Sender: FDA-Public Use
  Company Number: CN-009507513-2005CHN003542

PATIENT
  Sex: Male

DRUGS (6)
  1. TEMOZOLOMIDE. [Suspect]
     Active Substance: TEMOZOLOMIDE
     Dosage: 300 MILLIGRAM, HS
     Route: 048
     Dates: start: 20200506
  2. TEMOZOLOMIDE. [Suspect]
     Active Substance: TEMOZOLOMIDE
     Dosage: UNK
     Route: 048
     Dates: start: 2020
  3. TEMOZOLOMIDE. [Suspect]
     Active Substance: TEMOZOLOMIDE
     Dosage: UNK
     Route: 048
     Dates: start: 20200308
  4. TEMOZOLOMIDE. [Suspect]
     Active Substance: TEMOZOLOMIDE
     Indication: GLIOMA
     Dosage: UNK
     Route: 048
     Dates: start: 2019
  5. TEMOZOLOMIDE. [Suspect]
     Active Substance: TEMOZOLOMIDE
     Dosage: UNK
     Route: 048
     Dates: start: 20200210
  6. DEPAKIN [Concomitant]
     Active Substance: VALPROATE SODIUM
     Indication: EPILEPSY
     Dosage: UNK
     Route: 048
     Dates: start: 20191004

REACTIONS (6)
  - Poor quality sleep [Unknown]
  - Vomiting [Unknown]
  - Seizure [Unknown]
  - Alopecia [Unknown]
  - Blood bilirubin increased [Unknown]
  - Brain oedema [Unknown]

NARRATIVE: CASE EVENT DATE: 201912
